FAERS Safety Report 9234690 (Version 1)
Quarter: 2013Q1

REPORT INFORMATION
  Report Type: Spontaneous
  Country: US (occurrence: None)
  Receive Date: 20121031
  Receipt Date: 20121031
  Transmission Date: 20140127
  Serious: Yes (Hospitalization)
  Sender: FDA-Public Use
  Company Number: PHEH2012US013026

PATIENT
  Age: 44 Year
  Sex: Female

DRUGS (4)
  1. GILENYA (FTY) CAPSULE, 0.5 MG [Suspect]
     Indication: MULTIPLE SCLEROSIS
     Route: 048
     Dates: start: 20120628, end: 20120629
  2. CYMBALTA (DULOXETINE HYDROCHLORIDE) [Concomitant]
  3. CELEBREX (CELECOXIB) [Concomitant]
  4. VICODIN (HYDROCODONE BITARTRATE, PARACETAMOL) [Concomitant]

REACTIONS (4)
  - Atrioventricular block complete [None]
  - Headache [None]
  - Dizziness [None]
  - Heart rate decreased [None]
